FAERS Safety Report 20591845 (Version 1)
Quarter: 2022Q1

REPORT INFORMATION
  Report Type: Spontaneous
  Country: US (occurrence: US)
  Receive Date: 20220314
  Receipt Date: 20220314
  Transmission Date: 20220423
  Serious: No
  Sender: FDA-Public Use
  Company Number: US-CELGENE-USA-20220303508

PATIENT
  Sex: Male

DRUGS (1)
  1. FEDRATINIB [Suspect]
     Active Substance: FEDRATINIB
     Indication: Thrombocytosis
     Dosage: 1600 MILLIGRAM
     Route: 048
     Dates: start: 20220309

REACTIONS (2)
  - Abdominal pain [Unknown]
  - Diarrhoea [Unknown]
